FAERS Safety Report 9915768 (Version 2)
Quarter: 2014Q1

REPORT INFORMATION
  Report Type: Spontaneous
  Country: FR (occurrence: None)
  Receive Date: 20140218
  Receipt Date: 20140304
  Transmission Date: 20141002
  Serious: Yes (Other)
  Sender: FDA-Public Use
  Company Number: 7267657

PATIENT
  Age: 45 Year
  Sex: Female

DRUGS (2)
  1. LEVOTHYROX [Suspect]
     Indication: AUTOIMMUNE THYROIDITIS
     Route: 048
     Dates: start: 2005
  2. CRESTOR  (ROSUVASTATIN) [Concomitant]

REACTIONS (8)
  - Tuberculosis [None]
  - Adrenal adenoma [None]
  - Adrenal mass [None]
  - Pulmonary mass [None]
  - Night sweats [None]
  - Asthenia [None]
  - Skin reaction [None]
  - Weight decreased [None]
